FAERS Safety Report 5644306-7 (Version None)
Quarter: 2008Q1

REPORT INFORMATION
  Report Type: 
  Country: None (occurrence: None)
  Receive Date: 20080229
  Receipt Date: 20080221
  Transmission Date: 20080703
  Serious: Yes (Hospitalization, Other)
  Sender: FDA-Public Use
  Company Number: PHRM2007FR02770

PATIENT
  Age: 94 Year
  Sex: Female
  Weight: 50 kg

DRUGS (5)
  1. EXELON [Suspect]
     Indication: DEMENTIA ALZHEIMER'S TYPE
     Dosage: 1.5 MG, QD
     Route: 048
     Dates: start: 20071023, end: 20071023
  2. CARTEOLOL (NVO) [Suspect]
     Indication: GLAUCOMA
     Dosage: 1 DRP, BID
     Route: 047
  3. RISPERDAL [Concomitant]
     Indication: HALLUCINATION
     Dosage: 0.5 DF, QD
     Route: 048
  4. ATENOLOL [Suspect]
     Dosage: 25 MG, QD
     Route: 048
     Dates: end: 20071023
  5. DEPAMIDE [Concomitant]
     Indication: PSYCHOTIC DISORDER
     Route: 048

REACTIONS (9)
  - BRADYPHRENIA [None]
  - DEPRESSED LEVEL OF CONSCIOUSNESS [None]
  - DRUG INTERACTION [None]
  - GAIT DISTURBANCE [None]
  - HYPOTENSION [None]
  - MALAISE [None]
  - PALLOR [None]
  - PULSE PRESSURE DECREASED [None]
  - SINUS BRADYCARDIA [None]
